FAERS Safety Report 17112715 (Version 1)
Quarter: 2019Q4

REPORT INFORMATION
  Report Type: Report from Study
  Country: BE (occurrence: BE)
  Receive Date: 20191204
  Receipt Date: 20191204
  Transmission Date: 20200122
  Serious: Yes (Hospitalization, Other)
  Sender: FDA-Public Use
  Company Number: BE-MYLANLABS-2019M1118603

PATIENT
  Age: 43 Year
  Sex: Female

DRUGS (4)
  1. VORICONAZOLE. [Suspect]
     Active Substance: VORICONAZOLE
     Indication: PRODUCT USED FOR UNKNOWN INDICATION
     Dosage: 50 MG, 2X/DAY (BID)
     Route: 065
  2. ALEMTUZUMAB [Suspect]
     Active Substance: ALEMTUZUMAB
     Indication: PRODUCT USED FOR UNKNOWN INDICATION
     Dosage: UNK, UNK
     Route: 041
  3. PANTOMED                           /00178901/ [Concomitant]
     Active Substance: DEXPANTHENOL
     Dosage: 40 MG, QD
     Route: 065
  4. CIPRALEX [Concomitant]
     Active Substance: ESCITALOPRAM OXALATE
     Dosage: 10 MG, QD
     Route: 065

REACTIONS (21)
  - Gingival bleeding [Unknown]
  - Nausea [Unknown]
  - Hypersomnia [Unknown]
  - Influenza [Not Recovered/Not Resolved]
  - Hyperhidrosis [Unknown]
  - Temperature intolerance [Unknown]
  - Bronchopulmonary aspergillosis [Unknown]
  - Septic shock [Unknown]
  - Blood pressure decreased [Recovered/Resolved]
  - Epilepsy [Unknown]
  - Pharyngeal abscess [Recovering/Resolving]
  - Candida pneumonia [Unknown]
  - Hepatic function abnormal [Unknown]
  - Dysphagia [Recovering/Resolving]
  - Bleeding time shortened [Unknown]
  - Pneumonia aspiration [Unknown]
  - Blood urine present [Unknown]
  - Dysuria [Unknown]
  - Cystitis [Unknown]
  - Fatigue [Unknown]
  - Pyrexia [Unknown]

NARRATIVE: CASE EVENT DATE: 201804
